FAERS Safety Report 19716934 (Version 1)
Quarter: 2021Q3

REPORT INFORMATION
  Report Type: Spontaneous
  Country: US (occurrence: US)
  Receive Date: 20210819
  Receipt Date: 20210819
  Transmission Date: 20211014
  Serious: No
  Sender: FDA-Public Use
  Company Number: US-SA-2021SA272375

PATIENT
  Sex: Male

DRUGS (8)
  1. VITAMIN D3 [Concomitant]
     Active Substance: CHOLECALCIFEROL
  2. VENTOLIN [Concomitant]
     Active Substance: ALBUTEROL SULFATE
  3. CYCLOBENZAPRIN [Concomitant]
     Active Substance: CYCLOBENZAPRINE
  4. DUPIXENT [Suspect]
     Active Substance: DUPILUMAB
     Indication: DERMATITIS ATOPIC
     Dosage: 300 MG, QOW
     Route: 058
     Dates: start: 20200311
  5. FISH OIL [Concomitant]
     Active Substance: FISH OIL
  6. ROSUVASTATIN. [Concomitant]
     Active Substance: ROSUVASTATIN
  7. VALSARTAN. [Concomitant]
     Active Substance: VALSARTAN
  8. CENTRUM [CYTIDINE;URIDINE] [Concomitant]

REACTIONS (1)
  - Eye pain [Unknown]
